FAERS Safety Report 15847806 (Version 1)
Quarter: 2019Q1

REPORT INFORMATION
  Report Type: Spontaneous
  Country: JP (occurrence: JP)
  Receive Date: 20190121
  Receipt Date: 20190121
  Transmission Date: 20190417
  Serious: Yes (Other)
  Sender: FDA-Public Use
  Company Number: JP-TEVA-2019-JP-100070

PATIENT
  Age: 21 Year
  Sex: Male

DRUGS (4)
  1. CRAVIT [Concomitant]
     Active Substance: LEVOFLOXACIN
     Route: 061
  2. PREDNISOLONE. [Suspect]
     Active Substance: PREDNISOLONE
     Indication: MYASTHENIA GRAVIS
     Dosage: 10 MILLIGRAM DAILY;
     Route: 048
  3. BERBESOLONE F [Concomitant]
     Active Substance: BETAMETHASONE\NEOMYCIN
     Dosage: NEOMYCIN  0.10 %; BETAMETHASONE SODIUM PHOSPHATE 0.10
     Route: 061
  4. NEVANAC [Suspect]
     Active Substance: NEPAFENAC
     Indication: PRODUCT USED FOR UNKNOWN INDICATION
     Route: 061

REACTIONS (3)
  - Ulcerative keratitis [Unknown]
  - Dry eye [Recovering/Resolving]
  - Cataract subcapsular [Recovering/Resolving]

NARRATIVE: CASE EVENT DATE: 201304
